FAERS Safety Report 8430396-5 (Version None)
Quarter: 2012Q2

REPORT INFORMATION
  Report Type: 
  Country: None (occurrence: None)
  Receive Date: 20120612
  Receipt Date: 20120531
  Transmission Date: 20120825
  Serious: Yes (Other)
  Sender: FDA-Public Use
  Company Number: US-ACTELION-A-US2011-48608

PATIENT

DRUGS (2)
  1. OXYGEN [Concomitant]
  2. TRACLEER [Suspect]
     Indication: PULMONARY ARTERIAL HYPERTENSION
     Dosage: UNK
     Route: 048
     Dates: start: 20060406

REACTIONS (6)
  - INFLUENZA [None]
  - INFLUENZA LIKE ILLNESS [None]
  - VOMITING [None]
  - NASOPHARYNGITIS [None]
  - DRUG DOSE OMISSION [None]
  - UPPER LIMB FRACTURE [None]
